FAERS Safety Report 16462531 (Version 1)
Quarter: 2019Q2

REPORT INFORMATION
  Report Type: Report from Study
  Country: None (occurrence: US)
  Receive Date: 20190621
  Receipt Date: 20190621
  Transmission Date: 20190711
  Serious: Yes (Hospitalization, Other)
  Sender: FDA-Public Use
  Company Number: US-ABBVIE-19K-163-2755414-00

PATIENT
  Age: 15 Year
  Sex: Female
  Weight: 47.9 kg

DRUGS (4)
  1. HUMIRA [Suspect]
     Active Substance: ADALIMUMAB
     Route: 058
     Dates: start: 201905, end: 201905
  2. HUMIRA [Suspect]
     Active Substance: ADALIMUMAB
     Indication: CROHN^S DISEASE
     Dosage: DAY 1
     Route: 058
     Dates: start: 20190415, end: 20190415
  3. REMICADE [Concomitant]
     Active Substance: INFLIXIMAB
     Indication: CROHN^S DISEASE
  4. HUMIRA [Suspect]
     Active Substance: ADALIMUMAB
     Dosage: DAY 15
     Route: 058
     Dates: start: 20190429, end: 20190429

REACTIONS (5)
  - Gastritis [Unknown]
  - Colitis [Unknown]
  - Viral infection [Unknown]
  - Crohn^s disease [Recovering/Resolving]
  - Lymphocytosis [Unknown]

NARRATIVE: CASE EVENT DATE: 201904
